FAERS Safety Report 8769732 (Version 1)
Quarter: 2012Q4

REPORT INFORMATION
  Report Type: 
  Country: IT (occurrence: IT)
  Receive Date: 20120905
  Receipt Date: 20120905
  Transmission Date: 20130627
  Serious: Yes (Other)
  Sender: FDA-Public Use
  Company Number: IT-JNJFOC-20120814214

PATIENT
  Age: 26 Year
  Sex: Female
  Weight: 60 kg

DRUGS (4)
  1. RISPERDAL [Suspect]
     Indication: MENTAL DISORDER
     Route: 048
     Dates: start: 20120829, end: 20120829
  2. RISPERDAL [Suspect]
     Indication: MENTAL DISORDER
     Route: 048
  3. PROTHIADEN [Suspect]
     Indication: SELF INJURIOUS BEHAVIOUR
     Route: 048
     Dates: start: 20120829, end: 20120829
  4. ETHYL ALCOHOL [Suspect]
     Indication: SELF INJURIOUS BEHAVIOUR
     Route: 065
     Dates: start: 20120829, end: 20120829

REACTIONS (3)
  - Self injurious behaviour [Unknown]
  - Sopor [Unknown]
  - Intentional overdose [Unknown]
